FAERS Safety Report 5886419-0 (Version None)
Quarter: 2008Q3

REPORT INFORMATION
  Report Type: 
  Country: None (occurrence: None)
  Receive Date: 20080818
  Receipt Date: 20080505
  Transmission Date: 20090109
  Serious: Yes (Hospitalization)
  Sender: FDA-Public Use
  Company Number: 20073435

PATIENT
  Sex: Male

DRUGS (10)
  1. LIORESAL [Suspect]
     Indication: MUSCLE SPASTICITY
     Dosage: DAILY, INTRATHECAL
     Route: 037
  2. NEURONTIN [Concomitant]
  3. VALIUM [Concomitant]
  4. GUIAPHENASIN [Concomitant]
  5. SINGULAIR [Concomitant]
  6. ZYRTEC [Concomitant]
  7. PRILOSEC [Concomitant]
  8. NASACORT [Concomitant]
  9. ASTELIN [Concomitant]
  10. FLOVENT [Concomitant]

REACTIONS (5)
  - CONSTIPATION [None]
  - GAIT DISTURBANCE [None]
  - HEADACHE [None]
  - HYPERTONIA [None]
  - NAUSEA [None]
